FAERS Safety Report 9330058 (Version 2)
Quarter: 2013Q2

REPORT INFORMATION
  Report Type: Spontaneous
  Country: US (occurrence: None)
  Receive Date: 20130531
  Receipt Date: 20130612
  Transmission Date: 20140414
  Serious: Yes (Hospitalization, Other)
  Sender: FDA-Public Use
  Company Number: JPI-P-032176

PATIENT
  Age: 66 Year
  Sex: Male
  Weight: 92.99 kg

DRUGS (1)
  1. XYREM [Suspect]
     Indication: CATAPLEXY
     Dosage: (2.25 GM, 2 IN 1 D)
     Route: 048
     Dates: start: 20120907, end: 2012

REACTIONS (1)
  - Myocardial infarction [None]
